FAERS Safety Report 20995448 (Version 1)
Quarter: 2022Q2

REPORT INFORMATION
  Report Type: Report from Study
  Country: BE (occurrence: BE)
  Receive Date: 20220622
  Receipt Date: 20220622
  Transmission Date: 20220721
  Serious: Yes (Death, Hospitalization, Other)
  Sender: FDA-Public Use
  Company Number: BE-BRISTOL-MYERS SQUIBB COMPANY-2022-057740

PATIENT
  Age: 74 Year
  Sex: Male

DRUGS (1)
  1. APIXABAN [Suspect]
     Active Substance: APIXABAN
     Indication: Thrombosis
     Route: 048
     Dates: start: 20210813, end: 20220420

REACTIONS (2)
  - Colon cancer metastatic [Fatal]
  - Condition aggravated [Fatal]

NARRATIVE: CASE EVENT DATE: 20220421
